FAERS Safety Report 4733856-3 (Version None)
Quarter: 2005Q3

REPORT INFORMATION
  Report Type: 
  Country: None (occurrence: None)
  Receive Date: 20050729
  Receipt Date: 20050719
  Transmission Date: 20060218
  Serious: Yes (Disabling)
  Sender: FDA-Public Use
  Company Number: 220003L05BEL

PATIENT
  Age: 9 Year
  Sex: Female

DRUGS (1)
  1. SOMATROPIN (SOMATROPIN) [Suspect]
     Indication: PRADER-WILLI SYNDROME

REACTIONS (3)
  - CONTRAINDICATION TO MEDICAL TREATMENT [None]
  - DISEASE PROGRESSION [None]
  - SCOLIOSIS [None]
